FAERS Safety Report 16691049 (Version 1)
Quarter: 2019Q3

REPORT INFORMATION
  Report Type: Spontaneous
  Country: LV (occurrence: LV)
  Receive Date: 20190812
  Receipt Date: 20190812
  Transmission Date: 20191004
  Serious: Yes (Other)
  Sender: FDA-Public Use
  Company Number: LV-TEVA-2019-LV-1079923

PATIENT
  Age: 63 Year
  Sex: Female

DRUGS (4)
  1. QUETIAPINE 1X [Concomitant]
     Dosage: IN THE EVENING
  2. OMEPRAZOL GRINDEX 20 MG [Concomitant]
  3. ANASTROZOLE TEVA 1MG N28 [Suspect]
     Active Substance: ANASTROZOLE
     Route: 065
  4. GLUCOPHAGE XR 1000MG [Concomitant]

REACTIONS (9)
  - Malaise [Unknown]
  - Vomiting [Unknown]
  - Purulence [Unknown]
  - Fatigue [Unknown]
  - Skin ulcer [Unknown]
  - Sensory loss [Unknown]
  - Skin discolouration [Unknown]
  - Nausea [Unknown]
  - Hypoaesthesia [Unknown]

NARRATIVE: CASE EVENT DATE: 201905
